FAERS Safety Report 6300163-7 (Version None)
Quarter: 2009Q3

REPORT INFORMATION
  Report Type: 
  Country: None (occurrence: None)
  Receive Date: 20090806
  Receipt Date: 20090804
  Transmission Date: 20100115
  Serious: Yes (Death, Other)
  Sender: FDA-Public Use
  Company Number: PHEH2008US11596

PATIENT
  Sex: Female

DRUGS (3)
  1. GLEEVEC [Suspect]
     Indication: CHRONIC MYELOID LEUKAEMIA
     Dosage: 400 MG, QD
     Route: 048
     Dates: start: 20051001, end: 20060101
  2. GLEEVEC [Suspect]
     Dosage: UNK
     Dates: start: 20060101, end: 20070101
  3. GLEEVEC [Suspect]
     Dosage: UNK
     Dates: start: 20070101

REACTIONS (4)
  - ABDOMINAL OPERATION [None]
  - DEATH [None]
  - ESCHERICHIA INFECTION [None]
  - POSTOPERATIVE WOUND INFECTION [None]
